FAERS Safety Report 11401784 (Version 2)
Quarter: 2015Q3

REPORT INFORMATION
  Report Type: Spontaneous
  Country: CH (occurrence: CH)
  Receive Date: 20150821
  Receipt Date: 20150827
  Transmission Date: 20151125
  Serious: Yes (Hospitalization)
  Sender: FDA-Public Use
  Company Number: CH-ASTRAZENECA-2015SE80147

PATIENT
  Age: 85 Year
  Sex: Female

DRUGS (3)
  1. FLUDEX SR [Suspect]
     Active Substance: INDAPAMIDE
     Indication: HYPERTENSIVE CARDIOMYOPATHY
     Route: 048
     Dates: end: 20150723
  2. ANTRA MUPS [Interacting]
     Active Substance: OMEPRAZOLE MAGNESIUM
     Route: 048
  3. SEROPRAM [Interacting]
     Active Substance: CITALOPRAM HYDROBROMIDE
     Indication: DEPRESSION
     Route: 048
     Dates: end: 20150723

REACTIONS (4)
  - Hypomagnesaemia [Recovered/Resolved]
  - Torsade de pointes [Recovered/Resolved]
  - Drug interaction [Recovered/Resolved]
  - Hypokalaemia [Recovered/Resolved]

NARRATIVE: CASE EVENT DATE: 2015
